FAERS Safety Report 5389596-3 (Version None)
Quarter: 2007Q3

REPORT INFORMATION
  Report Type: 
  Country: None (occurrence: None)
  Receive Date: 20070713
  Receipt Date: 20070705
  Transmission Date: 20080115
  Serious: Yes (Other)
  Sender: FDA-Public Use
  Company Number: CHNY2007GB02445

PATIENT
  Age: 55 Year
  Sex: Female

DRUGS (1)
  1. NICOTINE [Suspect]
     Indication: SMOKING CESSATION THERAPY
     Dosage: 1 MG,  BUCCAL
     Route: 002

REACTIONS (2)
  - DRUG DEPENDENCE [None]
  - INCORRECT DRUG ADMINISTRATION DURATION [None]
